FAERS Safety Report 4523099-0 (Version None)
Quarter: 2004Q4

REPORT INFORMATION
  Report Type: 
  Country: None (occurrence: None)
  Receive Date: 20041210
  Receipt Date: 20041130
  Transmission Date: 20050328
  Serious: Yes (Other)
  Sender: FDA-Public Use
  Company Number: 200419186US

PATIENT
  Sex: Female

DRUGS (3)
  1. AMARYL [Suspect]
     Dosage: DOSE: UNK
  2. ACTOS [Concomitant]
     Dosage: DOSE: UNK
  3. ORAL ANTIDIABETICS [Concomitant]
     Dosage: DOSE: UNK

REACTIONS (1)
  - ANGIONEUROTIC OEDEMA [None]
